FAERS Safety Report 5481152-1 (Version None)
Quarter: 2007Q4

REPORT INFORMATION
  Report Type: 
  Country: None (occurrence: None)
  Receive Date: 20071004
  Receipt Date: 20070919
  Transmission Date: 20080405
  Serious: Yes (Death)
  Sender: FDA-Public Use
  Company Number: 2007RL000420

PATIENT
  Sex: Female

DRUGS (2)
  1. RYTHMOL [Suspect]
     Indication: ARRHYTHMIA
     Dosage: 225 MG; BID;
     Dates: start: 20070101, end: 20070101
  2. RYTHMOL [Suspect]
     Indication: TACHYCARDIA
     Dosage: 225 MG; BID;
     Dates: start: 20070101, end: 20070101

REACTIONS (4)
  - BRADYCARDIA [None]
  - CARDIAC PACEMAKER MALFUNCTION [None]
  - HYPOTENSION [None]
  - REFUSAL OF TREATMENT BY RELATIVE [None]
